FAERS Safety Report 7934472-2 (Version None)
Quarter: 2011Q4

REPORT INFORMATION
  Report Type: 
  Country: None (occurrence: None)
  Receive Date: 20111122
  Receipt Date: 20111114
  Transmission Date: 20120403
  Serious: Yes (Hospitalization)
  Sender: FDA-Public Use
  Company Number: JP-GLAXOSMITHKLINE-B0757772A

PATIENT
  Sex: Female

DRUGS (4)
  1. LAMICTAL [Suspect]
     Indication: BIPOLAR DISORDER
     Dosage: 25MG PER DAY
     Route: 048
     Dates: start: 20110901, end: 20110908
  2. SEROQUEL [Concomitant]
     Indication: SEDATION
     Dosage: 200MG PER DAY
     Route: 048
     Dates: start: 20110506
  3. TASMOLIN [Concomitant]
     Indication: PARKINSONISM
     Dosage: 4MG PER DAY
     Route: 048
     Dates: start: 20110818, end: 20110908
  4. LITHIUM CARBONATE [Concomitant]
     Route: 048

REACTIONS (3)
  - DRUG LEVEL INCREASED [None]
  - DELIRIUM [None]
  - TOXICITY TO VARIOUS AGENTS [None]
